FAERS Safety Report 5045603-9 (Version None)
Quarter: 2006Q3

REPORT INFORMATION
  Report Type: 
  Country: None (occurrence: None)
  Receive Date: 20060707
  Receipt Date: 20060628
  Transmission Date: 20061208
  Serious: Yes (Hospitalization)
  Sender: FDA-Public Use
  Company Number: US-ROCHE-453669

PATIENT
  Age: 79 Year
  Sex: Female

DRUGS (3)
  1. BONIVA [Suspect]
     Indication: OSTEOPOROSIS
     Route: 048
     Dates: start: 20051115, end: 20060515
  2. SYNTHROID [Concomitant]
  3. NEXIUM [Concomitant]

REACTIONS (1)
  - RENAL FAILURE ACUTE [None]
